FAERS Safety Report 12367888 (Version 1)
Quarter: 2016Q2

REPORT INFORMATION
  Report Type: Spontaneous
  Country: DK (occurrence: DK)
  Receive Date: 20160513
  Receipt Date: 20160513
  Transmission Date: 20160815
  Serious: Yes (Hospitalization)
  Sender: FDA-Public Use
  Company Number: DK-PERRIGO-16DK015774

PATIENT
  Age: 26 Year
  Sex: Male

DRUGS (4)
  1. NANDROLONE [Suspect]
     Active Substance: NANDROLONE
     Indication: MUSCLE BUILDING THERAPY
     Dosage: 1 DF, WEEKLY
     Route: 030
  2. METANDIENONE [Suspect]
     Active Substance: METHANDROSTENOLONE
     Indication: MUSCLE BUILDING THERAPY
     Dosage: 60 MG, QD
     Route: 048
  3. TESTOSTERONE ENANTHATE. [Suspect]
     Active Substance: TESTOSTERONE ENANTHATE
     Indication: MUSCLE BUILDING THERAPY
     Dosage: 1000 MG, WEEKLY
     Route: 030
  4. INSULIN [Suspect]
     Active Substance: INSULIN NOS
     Indication: PRODUCT USED FOR UNKNOWN INDICATION
     Dosage: 161 UNITS, QD
     Route: 058

REACTIONS (3)
  - Night sweats [Unknown]
  - Pulmonary alveolar haemorrhage [Recovered/Resolved]
  - Drug abuse [Recovered/Resolved]
